FAERS Safety Report 10656131 (Version 3)
Quarter: 2015Q3

REPORT INFORMATION
  Report Type: Spontaneous
  Country: US (occurrence: US)
  Receive Date: 20141216
  Receipt Date: 20150730
  Transmission Date: 20151125
  Serious: Yes (Hospitalization, Other)
  Sender: FDA-Public Use
  Company Number: US-BAYER-2014-183251

PATIENT
  Age: 25 Year
  Sex: Female
  Weight: 45.35 kg

DRUGS (1)
  1. MIRENA [Suspect]
     Active Substance: LEVONORGESTREL
     Indication: CONTRACEPTION
     Dosage: 20 MCG/24HR, CONT
     Route: 015
     Dates: start: 20090610, end: 20110228

REACTIONS (9)
  - Procedural pain [None]
  - Genital haemorrhage [None]
  - Injury [None]
  - Device issue [None]
  - Uterine perforation [None]
  - Ovarian cyst [None]
  - Anxiety [None]
  - Stress [None]
  - Pain [None]

NARRATIVE: CASE EVENT DATE: 201101
